FAERS Safety Report 8181829-3 (Version None)
Quarter: 2012Q1

REPORT INFORMATION
  Report Type: 
  Country: None (occurrence: None)
  Receive Date: 20120302
  Receipt Date: 20120220
  Transmission Date: 20120608
  Serious: Yes (Hospitalization)
  Sender: FDA-Public Use
  Company Number: IN-WATSON-2012-03308

PATIENT
  Sex: Male
  Weight: 1.8 kg

DRUGS (1)
  1. DICLOFENAC SODIUM [Suspect]
     Indication: BACK PAIN
     Dosage: UNKNOWN NUMBER OF DOSES OF 50 MG TABLETS
     Route: 064

REACTIONS (2)
  - RENAL FAILURE NEONATAL [None]
  - RESPIRATORY DEPRESSION [None]
